FAERS Safety Report 21088341 (Version 1)
Quarter: 2022Q3

REPORT INFORMATION
  Report Type: Spontaneous
  Country: US (occurrence: None)
  Receive Date: 20220715
  Receipt Date: 20220715
  Transmission Date: 20221027
  Serious: No
  Sender: FDA-Public Use
  Company Number: None

PATIENT
  Age: 52 Year
  Sex: Female

DRUGS (2)
  1. TRINTELLIX [Suspect]
     Active Substance: VORTIOXETINE HYDROBROMIDE
     Indication: Product used for unknown indication
  2. DEVICE [Suspect]
     Active Substance: DEVICE

REACTIONS (3)
  - Weight increased [None]
  - Breast prosthesis user [None]
  - Implant site pain [None]

NARRATIVE: CASE EVENT DATE: 20220630
